FAERS Safety Report 7713430-7 (Version None)
Quarter: 2011Q3

REPORT INFORMATION
  Report Type: 
  Country: None (occurrence: None)
  Receive Date: 20110826
  Receipt Date: 20110818
  Transmission Date: 20111222
  Serious: Yes (Other)
  Sender: FDA-Public Use
  Company Number: US-PURDUE-USA-2011-0074077

PATIENT
  Age: 28 Year
  Sex: Female

DRUGS (3)
  1. OXYCODONE HCL [Suspect]
     Indication: SUBSTANCE ABUSE
  2. HEROIN [Suspect]
     Indication: SUBSTANCE ABUSE
  3. ALCOHOL [Suspect]
     Indication: SUBSTANCE ABUSE

REACTIONS (4)
  - DRUG DEPENDENCE [None]
  - SUBSTANCE ABUSE [None]
  - DEPRESSION [None]
  - ALCOHOLISM [None]
